FAERS Safety Report 8263134-X (Version None)
Quarter: 2012Q2

REPORT INFORMATION
  Report Type: 
  Country: None (occurrence: None)
  Receive Date: 20120405
  Receipt Date: 20120323
  Transmission Date: 20120825
  Serious: Yes (Hospitalization)
  Sender: FDA-Public Use
  Company Number: US-ELI_LILLY_AND_COMPANY-US201203007898

PATIENT

DRUGS (1)
  1. ZYPREXA RELPREVV [Suspect]
     Indication: SCHIZOPHRENIA
     Dosage: 300 MG, UNKNOWN
     Dates: start: 20120314

REACTIONS (3)
  - FALL [None]
  - ORTHOSTATIC INTOLERANCE [None]
  - DRUG INTERACTION [None]
